FAERS Safety Report 7285500 (Version 24)
Quarter: 2017Q1

REPORT INFORMATION
  Report Type: Report from Study
  Country: CA (occurrence: CA)
  Receive Date: 20100219
  Receipt Date: 20170209
  Transmission Date: 20170429
  Serious: Yes (Other)
  Sender: FDA-Public Use
  Company Number: PHHY2009CA56002

PATIENT
  Age: 68 Year
  Sex: Female

DRUGS (12)
  1. ASAPHEN [Concomitant]
     Active Substance: ASPIRIN
     Indication: PRODUCT USED FOR UNKNOWN INDICATION
     Dosage: 80 MG, QD (DAILY)
     Route: 065
  2. GLUCOSAMINE [Concomitant]
     Active Substance: GLUCOSAMINE
     Indication: PRODUCT USED FOR UNKNOWN INDICATION
     Route: 065
  3. ARIMIDEX [Concomitant]
     Active Substance: ANASTROZOLE
     Indication: PRODUCT USED FOR UNKNOWN INDICATION
     Dosage: UNK UNK, QMO (EVERY MONTH)
     Route: 065
  4. SANDOSTATIN LAR DEPOT [Suspect]
     Active Substance: OCTREOTIDE ACETATE
     Dosage: 30 MG, QMO (EVERY 4 WEEKS)
     Route: 030
  5. ZOLETA [Concomitant]
     Active Substance: LETROZOLE
     Indication: CHEMOTHERAPY
     Route: 048
     Dates: start: 20131111
  6. SANDOSTATIN LAR DEPOT [Suspect]
     Active Substance: OCTREOTIDE ACETATE
     Dosage: 30 MG, QMO (ONCE A MONTH)
     Route: 030
     Dates: start: 20141209
  7. SANDOSTATIN LAR DEPOT [Suspect]
     Active Substance: OCTREOTIDE ACETATE
     Indication: ACROMEGALY
     Dosage: 20 MG, QMO (EVERY 4 WEEKS)
     Route: 030
     Dates: start: 20091119
  8. AMOXI-CLAVULAN [Concomitant]
     Indication: PRODUCT USED FOR UNKNOWN INDICATION
     Route: 065
     Dates: end: 20131203
  9. CARBOCAL D [Concomitant]
     Active Substance: CALCIUM\VITAMIN D
     Indication: PRODUCT USED FOR UNKNOWN INDICATION
     Route: 065
  10. GRAVOL [Suspect]
     Active Substance: DIMENHYDRINATE
     Indication: PRODUCT USED FOR UNKNOWN INDICATION
     Route: 065
  11. TYKERB [Concomitant]
     Active Substance: LAPATINIB DITOSYLATE
     Indication: CHEMOTHERAPY
     Route: 048
     Dates: start: 20131111
  12. ERIBULIN [Concomitant]
     Active Substance: ERIBULIN
     Indication: CHEMOTHERAPY
     Route: 065

REACTIONS (38)
  - Breast cancer [Unknown]
  - Blood pressure diastolic decreased [Unknown]
  - Heart rate decreased [Unknown]
  - Gastrointestinal sounds abnormal [Unknown]
  - Diarrhoea [Unknown]
  - Hepatic lesion [Unknown]
  - Myalgia [Unknown]
  - Tooth abscess [Not Recovered/Not Resolved]
  - Somnolence [Unknown]
  - Blood pressure increased [Unknown]
  - Erythema [Not Recovered/Not Resolved]
  - Infection [Unknown]
  - Hyperhidrosis [Unknown]
  - Swelling [Unknown]
  - Breast mass [Unknown]
  - Type 2 diabetes mellitus [Unknown]
  - Red blood cell count decreased [Unknown]
  - Contusion [Unknown]
  - Pain [Recovered/Resolved]
  - Fall [Unknown]
  - Limb injury [Unknown]
  - Peripheral swelling [Unknown]
  - Fatigue [Not Recovered/Not Resolved]
  - Lung neoplasm malignant [Unknown]
  - Metastases to liver [Unknown]
  - Neck pain [Unknown]
  - Mean cell haemoglobin concentration increased [Unknown]
  - Lymphocyte percentage decreased [Unknown]
  - Tachycardia paroxysmal [Unknown]
  - Hot flush [Unknown]
  - Chills [Unknown]
  - Metastases to bone [Unknown]
  - Tooth infection [Unknown]
  - Pain in extremity [Not Recovered/Not Resolved]
  - Mean cell volume increased [Unknown]
  - Palpitations [Recovered/Resolved]
  - Anxiety [Unknown]
  - Hypoaesthesia [Not Recovered/Not Resolved]

NARRATIVE: CASE EVENT DATE: 20100205
